FAERS Safety Report 5651942-0 (Version None)
Quarter: 2008Q1

REPORT INFORMATION
  Report Type: 
  Country: None (occurrence: None)
  Receive Date: 20080304
  Receipt Date: 20080221
  Transmission Date: 20080703
  Serious: Yes (Hospitalization)
  Sender: FDA-Public Use
  Company Number: 2006BI007819

PATIENT
  Age: 52 Year
  Sex: Female
  Weight: 90.7194 kg

DRUGS (1)
  1. AVONEX [Suspect]
     Indication: MULTIPLE SCLEROSIS
     Dosage: 30 UG QW
     Dates: start: 19981101

REACTIONS (9)
  - ARTHRITIS [None]
  - FALL [None]
  - FOOD ALLERGY [None]
  - INFLAMMATORY BOWEL DISEASE [None]
  - MEDICAL DEVICE COMPLICATION [None]
  - MUSCULAR WEAKNESS [None]
  - NERVE COMPRESSION [None]
  - PROCEDURAL PAIN [None]
  - THYROID DISORDER [None]
